FAERS Safety Report 9371744 (Version 2)
Quarter: 2014Q2

REPORT INFORMATION
  Report Type: Report from Study
  Country: US (occurrence: US)
  Receive Date: 20130627
  Receipt Date: 20140626
  Transmission Date: 20141212
  Serious: Yes (Other)
  Sender: FDA-Public Use
  Company Number: US-MYLANLABS-2012S1001710

PATIENT
  Age: 82 Year
  Sex: Male
  Weight: 72.58 kg

DRUGS (29)
  1. CLOZAPINE TABLETS [Suspect]
     Indication: SCHIZOPHRENIA, PARANOID TYPE
     Route: 048
     Dates: start: 2011, end: 20130114
  2. CLOZAPINE TABLETS [Suspect]
     Indication: BIPOLAR I DISORDER
     Route: 048
     Dates: start: 2011, end: 20130114
  3. CLOZAPINE TABLETS [Suspect]
     Indication: SCHIZOPHRENIA, PARANOID TYPE
     Route: 048
     Dates: start: 201301
  4. CLOZAPINE TABLETS [Suspect]
     Indication: BIPOLAR I DISORDER
     Route: 048
     Dates: start: 201301
  5. CLOZAPINE TABLETS [Suspect]
     Indication: SCHIZOPHRENIA, PARANOID TYPE
     Route: 048
     Dates: start: 2011, end: 20130114
  6. CLOZAPINE TABLETS [Suspect]
     Indication: BIPOLAR I DISORDER
     Route: 048
     Dates: start: 2011, end: 20130114
  7. CLOZAPINE TABLETS [Suspect]
     Indication: SCHIZOPHRENIA, PARANOID TYPE
     Route: 048
     Dates: start: 201301
  8. CLOZAPINE TABLETS [Suspect]
     Indication: BIPOLAR I DISORDER
     Route: 048
     Dates: start: 201301
  9. DEPAKOTE [Concomitant]
     Route: 048
  10. ZYPREXA [Concomitant]
     Route: 048
  11. CYMBALTA [Concomitant]
     Route: 048
  12. AMITRIPTYLINE [Concomitant]
     Route: 048
  13. LACTOSE [Concomitant]
  14. COLACE [Concomitant]
     Route: 048
  15. DORZOLAMIDE HCL AND TIMOLOL MALEATE [Concomitant]
  16. MIRALAX /00754501/ [Concomitant]
  17. ALBUTEROL HFA [Concomitant]
  18. NIFEREX /00023531/ [Concomitant]
  19. PREGABALIN [Concomitant]
  20. THIAMINE HCL [Concomitant]
     Route: 048
  21. VITAMIN B12 [Concomitant]
     Route: 048
  22. VITAMIN D [Concomitant]
  23. OXYCODONE [Concomitant]
     Indication: PAIN
     Route: 048
  24. DIAZEPAM [Concomitant]
     Route: 048
  25. PRILOSEC [Concomitant]
     Dosage: OTC
     Route: 048
  26. GUANFACINE [Concomitant]
     Route: 048
  27. SPIRIVA [Concomitant]
     Dosage: INHALER
  28. IBUPROFEN [Concomitant]
     Route: 048
  29. MOTRIN [Concomitant]
     Route: 048

REACTIONS (1)
  - Granulocytopenia [Not Recovered/Not Resolved]
